FAERS Safety Report 5082238-6 (Version None)
Quarter: 2006Q3

REPORT INFORMATION
  Report Type: 
  Country: None (occurrence: None)
  Receive Date: 20060815
  Receipt Date: 20060815
  Transmission Date: 20061208
  Serious: Yes (Hospitalization)
  Sender: FDA-Public Use
  Company Number: None

PATIENT
  Sex: Female
  Weight: 53.63 kg

DRUGS (4)
  1. CISPLATIN [Suspect]
     Dosage: 80 MG
  2. DOXORUBICIN HYDROCHLORIDE [Suspect]
     Dosage: 48 MG
  3. G-CSF (FILGRASTIM AMGEN) [Suspect]
     Dosage: 6 MG
  4. TAXOL [Suspect]
     Dosage: 199 MG

REACTIONS (9)
  - BLOOD ALBUMIN DECREASED [None]
  - CARDIO-RESPIRATORY ARREST [None]
  - CIRCULATORY COLLAPSE [None]
  - HAEMODYNAMIC INSTABILITY [None]
  - MALNUTRITION [None]
  - MENTAL STATUS CHANGES [None]
  - PULMONARY EMBOLISM [None]
  - RENAL FAILURE ACUTE [None]
  - URINARY TRACT INFECTION [None]
